FAERS Safety Report 6537227-9 (Version None)
Quarter: 2010Q1

REPORT INFORMATION
  Report Type: 
  Country: None (occurrence: None)
  Receive Date: 20100114
  Receipt Date: 20100106
  Transmission Date: 20100710
  Serious: Yes (Other)
  Sender: FDA-Public Use
  Company Number: PL-ROCHE-677784

PATIENT
  Sex: Female

DRUGS (4)
  1. PEGASYS [Suspect]
     Indication: HEPATITIS C
     Dosage: REPORTED DOSE: 180 MCG. THERAPY FOR 48 WEEKS.
     Route: 058
     Dates: start: 20071116
  2. PEGASYS [Suspect]
     Route: 058
     Dates: end: 20081017
  3. NEORECORMON [Suspect]
     Indication: ANAEMIA
     Dosage: INITIALLY IN THE DOSE 12 THOU; THE DOSE WAS GRADUALLY INCREASED
     Route: 065
     Dates: start: 20080118, end: 20081001
  4. REBETOL [Suspect]
     Indication: DRUG USE FOR UNKNOWN INDICATION
     Route: 065
     Dates: start: 20071116, end: 20081017

REACTIONS (3)
  - ANAEMIA [None]
  - HAEMOSIDEROSIS [None]
  - LEUKOPENIA [None]
